FAERS Safety Report 8016150-7 (Version None)
Quarter: 2011Q4

REPORT INFORMATION
  Report Type: 
  Country: None (occurrence: None)
  Receive Date: 20111228
  Receipt Date: 20111228
  Transmission Date: 20120403
  Serious: Yes (Life-Threatening)
  Sender: FDA-Public Use
  Company Number: None

PATIENT
  Age: 60 Year
  Sex: Male
  Weight: 83.6 kg

DRUGS (2)
  1. DESFLURANE [Suspect]
     Indication: GENERAL ANAESTHESIA
     Dates: start: 20110801, end: 20110801
  2. SUCCINYLCHOLINE CHLORIDE [Suspect]
     Indication: GENERAL ANAESTHESIA
     Dosage: 160 MG ONCE IV
     Route: 042
     Dates: start: 20110801, end: 20110801

REACTIONS (5)
  - METABOLIC ACIDOSIS [None]
  - RESPIRATORY ACIDOSIS [None]
  - HYPERTHERMIA MALIGNANT [None]
  - END-TIDAL CO2 INCREASED [None]
  - BLOOD POTASSIUM INCREASED [None]
